FAERS Safety Report 20363710 (Version 1)
Quarter: 2022Q1

REPORT INFORMATION
  Report Type: Spontaneous
  Country: US (occurrence: US)
  Receive Date: 20220121
  Receipt Date: 20220121
  Transmission Date: 20220424
  Serious: Yes (Other)
  Sender: FDA-Public Use
  Company Number: US-ABBVIE-22K-163-4243599-00

PATIENT
  Age: 40 Year
  Sex: Female

DRUGS (2)
  1. PAXLOVID [Suspect]
     Active Substance: NIRMATRELVIR\RITONAVIR
     Indication: COVID-19
     Dosage: THREE IN THE MORNING, TWELVE AND HALF HOURS LATER THREE AT NIGHT
     Route: 065
     Dates: start: 20220108, end: 20220109
  2. PAXLOVID [Suspect]
     Active Substance: NIRMATRELVIR\RITONAVIR
     Indication: COVID-19
     Dosage: THREE IN THE MORNING, TWELVE AND HALF HOURS LATER THREE AT NIGHT
     Route: 065
     Dates: start: 20220108, end: 20220109

REACTIONS (3)
  - Heart rate decreased [Unknown]
  - Headache [Unknown]
  - Ageusia [Unknown]

NARRATIVE: CASE EVENT DATE: 20220108
